FAERS Safety Report 6500013-X (Version None)
Quarter: 2009Q4

REPORT INFORMATION
  Report Type: 
  Country: None (occurrence: None)
  Receive Date: 20091216
  Receipt Date: 20091201
  Transmission Date: 20100525
  Serious: Yes (Other)
  Sender: FDA-Public Use
  Company Number: FR-BAYER-200611053BFR

PATIENT
  Age: 45 Year
  Sex: Male
  Weight: 72 kg

DRUGS (22)
  1. KOGENATE BAYER BIOSET [Suspect]
     Indication: IMMUNE SYSTEM DISORDER
     Route: 042
     Dates: start: 20060523, end: 20060529
  2. KOGENATE BAYER BIOSET [Suspect]
     Route: 042
     Dates: start: 20060520, end: 20060523
  3. KOGENATE BAYER BIOSET [Suspect]
     Route: 042
     Dates: start: 20060516, end: 20060519
  4. KOGENATE BAYER BIOSET [Suspect]
     Route: 042
  5. KOGENATE BAYER BIOSET [Suspect]
     Route: 042
     Dates: start: 20080411, end: 20090125
  6. KOGENATE BAYER BIOSET [Suspect]
     Route: 042
     Dates: start: 20061212, end: 20061212
  7. KOGENATE BAYER BIOSET [Suspect]
     Route: 042
     Dates: start: 20060530, end: 20060601
  8. KOGENATE BAYER BIOSET [Suspect]
     Route: 042
     Dates: start: 20060602, end: 20060605
  9. KOGENATE BAYER BIOSET [Suspect]
     Route: 042
     Dates: start: 20060606, end: 20061029
  10. KOGENATE BAYER BIOSET [Suspect]
     Route: 042
     Dates: start: 20061030, end: 20070125
  11. KOGENATE BAYER BIOSET [Suspect]
     Route: 042
     Dates: start: 20070126, end: 20070411
  12. KOGENATE BAYER BIOSET [Suspect]
     Route: 042
     Dates: start: 20090101, end: 20090101
  13. KOGENATE BAYER BIOSET [Suspect]
     Route: 042
  14. KOGENATE BAYER BIOSET [Suspect]
     Route: 042
     Dates: start: 20060512, end: 20060515
  15. KOGENATE BAYER BIOSET [Suspect]
     Route: 042
     Dates: start: 20060506, end: 20060511
  16. KOGENATE BAYER BIOSET [Suspect]
     Route: 042
     Dates: start: 20060502, end: 20060505
  17. KOGENATE BAYER BIOSET [Suspect]
     Route: 042
     Dates: start: 20060427, end: 20060501
  18. NOVOSEVEN [Concomitant]
     Indication: FACTOR VIII DEFICIENCY
     Dates: start: 19960520, end: 20060425
  19. FELDENE [Concomitant]
     Dates: start: 19970101
  20. OMEPRAZOLE [Concomitant]
     Dates: start: 19970101
  21. BROMAZEPAM [Concomitant]
     Dates: start: 19970101
  22. LOVENOX [Concomitant]
     Dates: start: 20060429, end: 20060531

REACTIONS (2)
  - FACTOR VIII INHIBITION [None]
  - VENOUS THROMBOSIS [None]
